FAERS Safety Report 6104706-8 (Version None)
Quarter: 2009Q1

REPORT INFORMATION
  Report Type: 
  Country: None (occurrence: None)
  Receive Date: 20090302
  Receipt Date: 20090218
  Transmission Date: 20090719
  Serious: Yes (Other)
  Sender: FDA-Public Use
  Company Number: 2008AL010616

PATIENT
  Age: 59 Year
  Sex: Male

DRUGS (21)
  1. DIGOXIN [Suspect]
     Dosage: 0.125MG, DAILY, PO
     Route: 048
  2. LANTUS [Concomitant]
  3. COREG [Concomitant]
  4. KLOR-CON [Concomitant]
  5. ZOCOR [Concomitant]
  6. LASIX [Concomitant]
  7. LISINOPRIL [Concomitant]
  8. FAMOTIDINE [Concomitant]
  9. AMYRYL [Concomitant]
  10. AMBIEN [Concomitant]
  11. ASPIRIN [Concomitant]
  12. CELEBREX [Concomitant]
  13. PEPCID [Concomitant]
  14. LASIMIDE [Concomitant]
  15. PRINIVIL [Concomitant]
  16. SOAB ANALGESIC [Concomitant]
  17. HUMALOG [Concomitant]
  18. NITROLINGUAL [Concomitant]
  19. ACETAMINOPHEN [Concomitant]
  20. NITROGLYCERIN SPRAY [Concomitant]
  21. TRAMADOL HCL [Concomitant]

REACTIONS (7)
  - CARDIAC FAILURE CONGESTIVE [None]
  - CORONARY ARTERY DISEASE [None]
  - DYSPNOEA PAROXYSMAL NOCTURNAL [None]
  - GLYCOSYLATED HAEMOGLOBIN INCREASED [None]
  - ISCHAEMIC CARDIOMYOPATHY [None]
  - KNEE OPERATION [None]
  - VENTRICULAR ARRHYTHMIA [None]
